FAERS Safety Report 6171243-4 (Version None)
Quarter: 2009Q2

REPORT INFORMATION
  Report Type: 
  Country: None (occurrence: None)
  Receive Date: 20090429
  Receipt Date: 20090420
  Transmission Date: 20091009
  Serious: Yes (Hospitalization)
  Sender: FDA-Public Use
  Company Number: US-ABBOTT-09P-163-0569201-00

PATIENT
  Sex: Female

DRUGS (4)
  1. LUPRON DEPOT [Suspect]
     Indication: ENDOMETRIOSIS
     Route: 030
     Dates: start: 20080723, end: 20080812
  2. LUPRON DEPOT [Suspect]
     Indication: INFERTILITY
  3. GONAL-F [Suspect]
     Indication: INFERTILITY
     Dates: start: 20080501
  4. GONAL-F [Suspect]
     Dates: start: 20080808, end: 20080812

REACTIONS (2)
  - DYSPNOEA [None]
  - HYPERSENSITIVITY [None]
